FAERS Safety Report 7945108-9 (Version None)
Quarter: 2011Q4

REPORT INFORMATION
  Report Type: 
  Country: None (occurrence: None)
  Receive Date: 20111129
  Receipt Date: 20111129
  Transmission Date: 20120403
  Serious: Yes (Hospitalization)
  Sender: FDA-Public Use
  Company Number: None

PATIENT
  Age: 17 Year
  Sex: Male
  Weight: 70 kg

DRUGS (1)
  1. VYVANSE [Suspect]
     Indication: ATTENTION DEFICIT/HYPERACTIVITY DISORDER
     Dosage: 20MG X 1
     Route: 048
     Dates: start: 20111115, end: 20111115

REACTIONS (4)
  - MUSCLE TWITCHING [None]
  - DYSARTHRIA [None]
  - DIZZINESS [None]
  - DYSKINESIA [None]
